FAERS Safety Report 9821395 (Version 3)
Quarter: 2014Q2

REPORT INFORMATION
  Report Type: Spontaneous
  Country: AU (occurrence: AU)
  Receive Date: 20140116
  Receipt Date: 20140402
  Transmission Date: 20141212
  Serious: Yes (Hospitalization)
  Sender: FDA-Public Use
  Company Number: AU-PFIZER INC-2013291146

PATIENT
  Age: 76 Year
  Sex: Male
  Weight: 112 kg

DRUGS (8)
  1. REVATIO [Suspect]
     Indication: PULMONARY HYPERTENSION
     Dosage: 20 MG, 3X/DAY
  2. REVATIO [Suspect]
     Indication: PULMONARY HYPERTENSION
  3. FRUSEMIDE [Concomitant]
     Indication: FLUID OVERLOAD
     Dosage: 80 MG MANE 40 MG MID-DAY
     Route: 048
  4. SPIRONOLACTONE [Concomitant]
     Dosage: 25 MG, 2X/DAY
  5. WARFARIN [Concomitant]
     Dosage: 3 MG AND 3.5 MG
  6. DIGOXIN [Concomitant]
     Dosage: 62.5 UG, 1X/DAY, MANE
  7. ALLOPURINOL [Concomitant]
     Indication: GOUT
     Dosage: 300 MG, 1X/DAY, MANE
     Route: 048
  8. PANADOL OSTEO [Concomitant]
     Dosage: 2 DF, 3X/DAY

REACTIONS (2)
  - Right ventricular failure [Recovered/Resolved]
  - Off label use [Unknown]
